FAERS Safety Report 16813238 (Version 6)
Quarter: 2021Q3

REPORT INFORMATION
  Report Type: Report from Study
  Country: JP (occurrence: JP)
  Receive Date: 20190916
  Receipt Date: 20210806
  Transmission Date: 20211014
  Serious: Yes (Hospitalization, Other)
  Sender: FDA-Public Use
  Company Number: JP-BRISTOL-MYERS SQUIBB COMPANY-BMS-2019-066032

PATIENT
  Age: 69 Year
  Sex: Male
  Weight: 57.6 kg

DRUGS (13)
  1. NIVOLUMAB [Suspect]
     Active Substance: NIVOLUMAB
     Indication: GASTRIC CANCER
     Dosage: 360 MG, Q3W
     Route: 041
     Dates: start: 20190118, end: 20190628
  2. DAIPHEN [Concomitant]
     Active Substance: SULFAMETHOXAZOLE\TRIMETHOPRIM
     Indication: PNEUMOCYSTIS JIROVECII PNEUMONIA
     Dosage: 1 DOSAGE FORM, Q6H
     Route: 048
     Dates: start: 20190827
  3. OMEPRAZOLE. [Concomitant]
     Active Substance: OMEPRAZOLE
     Indication: PRODUCT USED FOR UNKNOWN INDICATION
     Dosage: UNK
     Route: 065
  4. BIO?THREE [Concomitant]
     Active Substance: HERBALS
     Indication: CONSTIPATION PROPHYLAXIS
     Dosage: 3 DOSAGE FORM, Q8H
     Route: 048
     Dates: start: 20190118
  5. NEXIUM I.V. [Concomitant]
     Active Substance: ESOMEPRAZOLE SODIUM
     Indication: PROPHYLAXIS AGAINST GASTROINTESTINAL ULCER
     Dosage: 20 MILLIGRAM, QD
     Route: 048
     Dates: start: 20190708
  6. ARGAMATE [Concomitant]
     Active Substance: CALCIUM POLYSTYRENE SULFONATE
     Indication: HYPERKALAEMIA
     Dosage: 25 GRAM Q8H
     Route: 048
     Dates: start: 20190902
  7. LYRICA [Concomitant]
     Active Substance: PREGABALIN
     Indication: NEUROPATHY PERIPHERAL
     Dosage: 75 MILLIGRAM, QD
     Route: 048
     Dates: start: 20190208, end: 20190628
  8. FUNGUARD [Concomitant]
     Active Substance: MICAFUNGIN SODIUM
     Indication: FUNGAL INFECTION
     Dosage: 300 MILLIGRAM, QD
     Route: 041
     Dates: start: 20190822
  9. SODIUM CHLORIDE. [Concomitant]
     Active Substance: SODIUM CHLORIDE
     Indication: ELECTROLYTE SUBSTITUTION THERAPY
     Dosage: 2 GRAM, Q8H
     Route: 048
     Dates: start: 20190901
  10. XELODA [Concomitant]
     Active Substance: CAPECITABINE
     Indication: GASTRIC CANCER
     Dosage: 1800 MILLIGRAM, Q12H
     Route: 048
     Dates: start: 20190118
  11. MIYA?BM [Concomitant]
     Active Substance: CLOSTRIDIUM BUTYRICUM SPORES STRAIN M-55
     Indication: CONSTIPATION PROPHYLAXIS
     Dosage: 1 DOSAGE FORM, Q8H
     Route: 048
     Dates: start: 20190118
  12. ELPLAT [Concomitant]
     Active Substance: OXALIPLATIN
     Indication: GASTRIC CANCER
     Dosage: 130 MG/M2, Q3W
     Route: 042
     Dates: start: 20190118
  13. AMLODIPINE AMEL [Concomitant]
     Active Substance: AMLODIPINE BESYLATE
     Indication: HYPERTENSION
     Dosage: 5 MILLIGRAM, QD
     Route: 048
     Dates: start: 20180408

REACTIONS (3)
  - Colitis [Recovered/Resolved]
  - Interstitial lung disease [Not Recovered/Not Resolved]
  - Immune thrombocytopenia [Recovered/Resolved]

NARRATIVE: CASE EVENT DATE: 20190621
